FAERS Safety Report 16562416 (Version 3)
Quarter: 2020Q4

REPORT INFORMATION
  Report Type: Spontaneous
  Country: DE (occurrence: DE)
  Receive Date: 20190711
  Receipt Date: 20201222
  Transmission Date: 20210113
  Serious: Yes (Hospitalization, Other)
  Sender: FDA-Public Use
  Company Number: DE-LUNDBECK-DKLU3000683

PATIENT
  Age: 12 Year
  Sex: Male

DRUGS (9)
  1. PHENOBARBITAL. [Interacting]
     Active Substance: PHENOBARBITAL
     Indication: LENNOX-GASTAUT SYNDROME
  2. ETHOSUXIMIDE. [Interacting]
     Active Substance: ETHOSUXIMIDE
     Indication: LENNOX-GASTAUT SYNDROME
  3. PREGABALIN. [Interacting]
     Active Substance: PREGABALIN
     Indication: EPILEPSY
     Route: 065
  4. PREGABALIN. [Interacting]
     Active Substance: PREGABALIN
     Indication: LENNOX-GASTAUT SYNDROME
  5. CLOBAZAM. [Suspect]
     Active Substance: CLOBAZAM
     Indication: EPILEPSY
     Route: 065
  6. PHENOBARBITAL. [Interacting]
     Active Substance: PHENOBARBITAL
     Indication: EPILEPSY
     Route: 065
  7. CLOBAZAM. [Interacting]
     Active Substance: CLOBAZAM
     Indication: LENNOX-GASTAUT SYNDROME
  8. ETHOSUXIMIDE. [Interacting]
     Active Substance: ETHOSUXIMIDE
     Indication: EPILEPSY
     Route: 065
  9. TALOXA [Interacting]
     Active Substance: FELBAMATE
     Indication: EPILEPSY
     Route: 048
     Dates: start: 2017, end: 201702

REACTIONS (11)
  - Drug interaction [Unknown]
  - Off label use [Unknown]
  - Product use issue [Unknown]
  - Condition aggravated [Unknown]
  - Generalised tonic-clonic seizure [Unknown]
  - Petit mal epilepsy [Unknown]
  - Benzodiazepine drug level decreased [Unknown]
  - Depressed level of consciousness [Unknown]
  - Withdrawal syndrome [Unknown]
  - Product prescribing error [Unknown]
  - Seizure [Unknown]
